FAERS Safety Report 8074777-0 (Version None)
Quarter: 2012Q1

REPORT INFORMATION
  Report Type: 
  Country: None (occurrence: None)
  Receive Date: 20120126
  Receipt Date: 20120124
  Transmission Date: 20120608
  Serious: No
  Sender: FDA-Public Use
  Company Number: US-PFIZER INC-2012020704

PATIENT
  Sex: Male
  Weight: 100.68 kg

DRUGS (6)
  1. GABAPENTIN [Suspect]
     Indication: NERVOUS SYSTEM DISORDER
     Dosage: 300 MG, 3X/DAY
     Dates: start: 20110701
  2. POTASSIUM CITRATE [Concomitant]
     Indication: BLOOD URIC ACID
     Dosage: 1080 MG, DAILY
  3. METOPROLOL TARTRATE [Concomitant]
     Indication: BLOOD PRESSURE ABNORMAL
     Dosage: 75 MG, 2X/DAY
  4. LISINOPRIL [Concomitant]
     Indication: CARDIAC DISORDER
     Dosage: 10 MG, DAILY
  5. ALLOPURINOL [Concomitant]
     Indication: PROPHYLAXIS
     Dosage: 100 MG, 2X/DAY
  6. ASPIRIN [Concomitant]
     Dosage: TWO 81 MG TABLETS DAILY
     Route: 048

REACTIONS (1)
  - DRUG INEFFECTIVE [None]
